FAERS Safety Report 24958345 (Version 1)
Quarter: 2025Q1

REPORT INFORMATION
  Report Type: Spontaneous
  Country: ES (occurrence: ES)
  Receive Date: 20250212
  Receipt Date: 20250212
  Transmission Date: 20250409
  Serious: Yes (Hospitalization, Other)
  Sender: ALEXION PHARMACEUTICALS
  Company Number: None

PATIENT
  Age: 83 Year

DRUGS (2)
  1. OMEPRAZOLE [Suspect]
     Active Substance: OMEPRAZOLE
     Dosage: 20 MILLIGRAM, QD
  2. OXCARBAZEPINE [Concomitant]
     Active Substance: OXCARBAZEPINE
     Indication: Epilepsy

REACTIONS (8)
  - Hypomagnesaemia [Recovered/Resolved]
  - Pneumonia [Unknown]
  - Respiratory failure [Unknown]
  - Cardiac failure [Unknown]
  - Genital candidiasis [Unknown]
  - Diabetic metabolic decompensation [Unknown]
  - Normocytic anaemia [Unknown]
  - Thrombocytopenia [Unknown]
